FAERS Safety Report 14014944 (Version 2)
Quarter: 2017Q4

REPORT INFORMATION
  Report Type: Spontaneous
  Country: KR (occurrence: KR)
  Receive Date: 20170927
  Receipt Date: 20171025
  Transmission Date: 20180321
  Serious: Yes (Death)
  Sender: FDA-Public Use
  Company Number: KR-ACTELION-A-CH2017-159941

PATIENT
  Age: 44 Year
  Sex: Male

DRUGS (1)
  1. TRACLEER [Suspect]
     Active Substance: BOSENTAN
     Indication: PULMONARY ARTERIAL HYPERTENSION
     Dosage: UNK
     Route: 048
     Dates: end: 20170827

REACTIONS (2)
  - Pulmonary arterial hypertension [Fatal]
  - Condition aggravated [Fatal]
